FAERS Safety Report 5044999-1 (Version None)
Quarter: 2006Q2

REPORT INFORMATION
  Report Type: 
  Country: None (occurrence: None)
  Receive Date: 20060601
  Receipt Date: 20060320
  Transmission Date: 20061013
  Serious: No
  Sender: FDA-Public Use
  Company Number: US200603005382

PATIENT
  Age: 62 Year
  Sex: Female

DRUGS (4)
  1. FORTEO [Suspect]
     Indication: OSTEOPOROSIS
     Dates: start: 20050317
  2. CYMBALTA [Suspect]
     Indication: PAIN
     Dates: start: 20050317
  3. FORTEO [Concomitant]
  4. ULTRACET [Concomitant]

REACTIONS (6)
  - ANAEMIA [None]
  - CRYING [None]
  - EATING DISORDER [None]
  - HAEMOGLOBIN DECREASED [None]
  - INSOMNIA [None]
  - STRESS [None]
